FAERS Safety Report 12787655 (Version 2)
Quarter: 2017Q2

REPORT INFORMATION
  Report Type: Spontaneous
  Country: US (occurrence: US)
  Receive Date: 20160928
  Receipt Date: 20170619
  Transmission Date: 20170830
  Serious: No
  Sender: FDA-Public Use
  Company Number: US-GLAXOSMITHKLINE-US2016139875

PATIENT
  Sex: Female

DRUGS (1)
  1. DUTASTERIDE. [Suspect]
     Active Substance: DUTASTERIDE
     Indication: ACCIDENTAL EXPOSURE TO PRODUCT
     Dosage: UNK UNK, 1D
     Route: 067

REACTIONS (1)
  - Exposure via body fluid [Unknown]
